FAERS Safety Report 8533520-9 (Version None)
Quarter: 2012Q3

REPORT INFORMATION
  Report Type: 
  Country: None (occurrence: None)
  Receive Date: 20120717
  Receipt Date: 20120717
  Transmission Date: 20120928
  Serious: Yes (Life-Threatening)
  Sender: FDA-Public Use
  Company Number: None

PATIENT
  Sex: Male
  Weight: 129.2752 kg

DRUGS (16)
  1. VITAMIN B COMPLEX CAP [Concomitant]
  2. PEGASYS [Suspect]
     Indication: HEPATITIS C
     Dosage: 180 MCG EVERY WEEK SQ
     Route: 058
     Dates: start: 20111003, end: 20111128
  3. METHADONE HYDROCHLORIDE [Concomitant]
  4. METFORMIN HYDROCHLORIDE [Concomitant]
  5. PRILOSEC [Concomitant]
  6. PROZAC [Concomitant]
  7. FISH OIL [Concomitant]
  8. MULTI-VITAMIN [Concomitant]
  9. RIBAVIRIN [Suspect]
     Indication: HEPATITIS C
     Dosage: 600MG QAM + PM EVERY DAY PO
     Route: 048
     Dates: start: 20111003, end: 20111128
  10. INCIVEK [Concomitant]
  11. LYRICA [Concomitant]
  12. LISINOPRIL AND HYDROCHLOROTHIAZIDE [Concomitant]
  13. XANAX [Concomitant]
  14. VITAMIN B-12 [Concomitant]
  15. VISTARIL [Concomitant]
  16. GLYBURIDE [Concomitant]

REACTIONS (5)
  - INFLUENZA LIKE ILLNESS [None]
  - TREATMENT NONCOMPLIANCE [None]
  - DEHYDRATION [None]
  - DEPRESSION [None]
  - SUICIDAL IDEATION [None]
